FAERS Safety Report 8870611 (Version 1)
Quarter: 2012Q4

REPORT INFORMATION
  Report Type: 
  Country: US (occurrence: US)
  Receive Date: 20121023
  Receipt Date: 20121023
  Transmission Date: 20130627
  Serious: No
  Sender: FDA-Public Use
  Company Number: US-009507513-1210USA008255

PATIENT
  Age: 15 Year
  Sex: Female

DRUGS (3)
  1. SINGULAIR [Suspect]
     Indication: ASTHMA
     Dosage: 10 mg, qd
     Route: 048
     Dates: start: 2012, end: 20120907
  2. SINGULAIR [Suspect]
     Indication: ASTHMA
     Dosage: 5 mg, qd
     Route: 048
  3. SINGULAIR [Suspect]
     Dosage: 5 mg, bid
     Route: 048

REACTIONS (2)
  - Diarrhoea [Unknown]
  - Eructation [Not Recovered/Not Resolved]
